FAERS Safety Report 6451832-X (Version None)
Quarter: 2009Q4

REPORT INFORMATION
  Report Type: 
  Country: None (occurrence: None)
  Receive Date: 20091123
  Receipt Date: 20091109
  Transmission Date: 20100525
  Serious: Yes (Death, Hospitalization)
  Sender: FDA-Public Use
  Company Number: CA-MYLANLABS-2009S1019434

PATIENT
  Age: 61 Year
  Sex: Male

DRUGS (5)
  1. CLOZAPINE [Suspect]
     Indication: SCHIZOPHRENIA
     Dosage: 300MG TWICE DAILY
  2. OXYBUTYNIN [Suspect]
     Indication: SALIVARY HYPERSECRETION
     Dosage: 5MG TWICE DAILY
  3. PROCYCLIDINE HYDROCHLORIDE 2MG TAB [Suspect]
     Indication: SALIVARY HYPERSECRETION
     Dosage: 5MG TWICE DAILY
  4. LAMOTRIGINE [Concomitant]
     Dosage: 100MG TWICE DAILY
  5. FLURAZEPAM [Concomitant]
     Dosage: 15MG AT BEDTIME

REACTIONS (2)
  - CONSTIPATION [None]
  - INTESTINAL OBSTRUCTION [None]
